FAERS Safety Report 8584164-4 (Version None)
Quarter: 2012Q3

REPORT INFORMATION
  Report Type: 
  Country: None (occurrence: None)
  Receive Date: 20120810
  Receipt Date: 20120728
  Transmission Date: 20120928
  Serious: Yes (Other)
  Sender: FDA-Public Use
  Company Number: FR-PAR PHARMACEUTICAL, INC-2012SCPR004538

PATIENT

DRUGS (2)
  1. MINOCYCLINE HCL [Suspect]
     Indication: INFECTIVE PULMONARY EXACERBATION OF CYSTIC FIBROSIS
     Dosage: 100 MG, / DAY
     Route: 065
  2. MINOCYCLINE HCL [Suspect]
     Dosage: UNK, UNKNOWN
     Route: 065

REACTIONS (5)
  - PYREXIA [None]
  - CONGESTIVE CARDIOMYOPATHY [None]
  - PLEURAL EFFUSION [None]
  - EOSINOPHILIA [None]
  - MYOPERICARDITIS [None]
